FAERS Safety Report 9441385 (Version 1)
Quarter: 2013Q3

REPORT INFORMATION
  Report Type: Spontaneous
  Country: KR (occurrence: KR)
  Receive Date: 20130805
  Receipt Date: 20130805
  Transmission Date: 20140515
  Serious: Yes (Other)
  Sender: FDA-Public Use
  Company Number: KR-MERCK-1308KOR000196

PATIENT
  Sex: 0

DRUGS (1)
  1. COSOPT [Suspect]
     Dosage: UNK
     Route: 047

REACTIONS (2)
  - Retinal operation [Unknown]
  - Ocular hyperaemia [Recovered/Resolved]
